FAERS Safety Report 11075238 (Version 1)
Quarter: 2015Q2

REPORT INFORMATION
  Report Type: Spontaneous
  Country: US (occurrence: None)
  Receive Date: 20150428
  Receipt Date: 20150428
  Transmission Date: 20150821
  Serious: Yes (Life-Threatening, Hospitalization)
  Sender: FDA-Public Use
  Company Number: None

PATIENT
  Age: 6 Year
  Sex: Female
  Weight: 19.05 kg

DRUGS (1)
  1. ORAJEL [Suspect]
     Active Substance: ALLANTOIN\BENZOCAINE\CAMPHOR (NATURAL)\DIMETHICONE\MENTHOL
     Indication: ACCIDENTAL EXPOSURE TO PRODUCT
     Dosage: -- --

REACTIONS (1)
  - Methaemoglobinaemia [None]

NARRATIVE: CASE EVENT DATE: 20150321
